FAERS Safety Report 8174075-0 (Version None)
Quarter: 2012Q1

REPORT INFORMATION
  Report Type: 
  Country: None (occurrence: None)
  Receive Date: 20120227
  Receipt Date: 20120215
  Transmission Date: 20120608
  Serious: Yes (Death)
  Sender: FDA-Public Use
  Company Number: 2012ST000178

PATIENT
  Age: 60 Year
  Sex: Female

DRUGS (1)
  1. MATULANE [Suspect]
     Indication: BRAIN NEOPLASM MALIGNANT
     Dosage: 100 MG;QD;PO
     Route: 048
     Dates: start: 20120113

REACTIONS (1)
  - DEATH [None]
